FAERS Safety Report 5154824-6 (Version None)
Quarter: 2006Q4

REPORT INFORMATION
  Report Type: 
  Country: None (occurrence: None)
  Receive Date: 20061121
  Receipt Date: 20061110
  Transmission Date: 20070319
  Serious: Yes (Hospitalization)
  Sender: FDA-Public Use
  Company Number: US-JNJFOC-20060405011

PATIENT
  Sex: Male
  Weight: 104.33 kg

DRUGS (8)
  1. DURAGESIC-100 [Suspect]
     Indication: PAIN
     Route: 062
  2. DIOVAN [Concomitant]
     Indication: HYPERTENSION
     Dosage: 160/125 MG TABLET, ONE TABLET IN 24 HOURS, ORAL
     Route: 048
  3. ACTOS [Concomitant]
     Indication: DIABETES MELLITUS
     Route: 048
  4. LIPITOR [Concomitant]
     Indication: BLOOD CHOLESTEROL INCREASED
     Route: 048
  5. KLONOPIN [Concomitant]
     Indication: CONVULSION PROPHYLAXIS
     Route: 048
  6. XANAX [Concomitant]
     Indication: ANXIETY
     Route: 048
  7. SEROQUEL [Concomitant]
     Indication: INSOMNIA
     Route: 048
  8. LEXAPRO [Concomitant]
     Indication: ANXIETY
     Route: 048

REACTIONS (1)
  - NECK PAIN [None]
